FAERS Safety Report 4717788-2 (Version None)
Quarter: 2005Q3

REPORT INFORMATION
  Report Type: 
  Country: None (occurrence: None)
  Receive Date: 20050715
  Receipt Date: 20040922
  Transmission Date: 20060218
  Serious: Yes (Other)
  Sender: FDA-Public Use
  Company Number: 2004-00553

PATIENT
  Age: 52 Year
  Sex: Female
  Weight: 75.3 kg

DRUGS (6)
  1. INTEGRILIN [Suspect]
     Indication: CORONARY ANGIOPLASTY
     Dosage: SEE IMAGE
     Route: 040
     Dates: start: 20040922, end: 20040922
  2. . [Concomitant]
  3. HEPARIN [Suspect]
     Indication: CORONARY ANGIOPLASTY
     Dosage: 7000.00 UNITS, IV BOLUS
     Route: 040
     Dates: start: 20040922, end: 20040922
  4. NATTOKINASE (NATTOKINASE) [Suspect]
     Dosage: 40.00 MG, BID
     Dates: end: 20040920
  5. RED YEAST RICE [Concomitant]
  6. ASPIRIN [Concomitant]

REACTIONS (1)
  - RETROPERITONEAL HAEMORRHAGE [None]
